FAERS Safety Report 5152430-0 (Version None)
Quarter: 2006Q4

REPORT INFORMATION
  Report Type: 
  Country: None (occurrence: None)
  Receive Date: 20061116
  Receipt Date: 20060825
  Transmission Date: 20070319
  Serious: Yes (Hospitalization, Other)
  Sender: FDA-Public Use
  Company Number: US-ELI_LILLY_AND_COMPANY-US200609006334

PATIENT
  Age: 47 Year
  Sex: Male
  Weight: 83.9 kg

DRUGS (1)
  1. ZYPREXA [Suspect]
     Indication: BIPOLAR DISORDER
     Dosage: 10 MG, UNK
     Route: 065
     Dates: start: 20020101, end: 20040101

REACTIONS (4)
  - HEPATITIS VIRAL [None]
  - METABOLIC DISORDER [None]
  - PANCREATITIS [None]
  - WEIGHT DECREASED [None]
